FAERS Safety Report 20042018 (Version 1)
Quarter: 2021Q4

REPORT INFORMATION
  Report Type: Spontaneous
  Country: US (occurrence: US)
  Receive Date: 20211108
  Receipt Date: 20211108
  Transmission Date: 20220303
  Serious: No
  Sender: FDA-Public Use
  Company Number: US-BAUSCH-BL-2021-035641

PATIENT
  Age: 39 Year
  Sex: Male
  Weight: 102.15 kg

DRUGS (6)
  1. RELISTOR [Suspect]
     Active Substance: METHYLNALTREXONE BROMIDE
     Indication: Constipation
     Route: 065
     Dates: start: 20211011, end: 20211011
  2. METHADONE [Concomitant]
     Active Substance: METHADONE HYDROCHLORIDE
     Indication: Product used for unknown indication
     Route: 048
  3. METHADONE [Concomitant]
     Active Substance: METHADONE HYDROCHLORIDE
     Route: 048
  4. METHADONE [Concomitant]
     Active Substance: METHADONE HYDROCHLORIDE
     Route: 048
  5. DULCOLAX NOS [Concomitant]
     Active Substance: BISACODYL OR DOCUSATE SODIUM
     Indication: Product used for unknown indication
     Route: 048
  6. TYLENOL PM [Concomitant]
     Active Substance: ACETAMINOPHEN\DIPHENHYDRAMINE
     Indication: Product used for unknown indication
     Route: 048

REACTIONS (11)
  - Feeling abnormal [Recovered/Resolved]
  - Lid sulcus deepened [Recovered/Resolved]
  - Panic attack [Recovering/Resolving]
  - Decreased appetite [Recovering/Resolving]
  - Discomfort [Recovering/Resolving]
  - Formication [Recovering/Resolving]
  - Illness [Recovering/Resolving]
  - Drug withdrawal syndrome [Unknown]
  - Anxiety [Recovering/Resolving]
  - Dizziness [Recovering/Resolving]
  - Tremor [Recovered/Resolved]

NARRATIVE: CASE EVENT DATE: 20210101
